FAERS Safety Report 9888523 (Version 1)
Quarter: 2014Q1

REPORT INFORMATION
  Report Type: Spontaneous
  Country: US (occurrence: US)
  Receive Date: 20140211
  Receipt Date: 20140211
  Transmission Date: 20141002
  Serious: Yes (Other)
  Sender: FDA-Public Use
  Company Number: US-BAYER-2014-018511

PATIENT
  Age: 32 Year
  Sex: Female

DRUGS (2)
  1. MIRENA [Suspect]
     Indication: CONTRACEPTION
     Dosage: UNK
     Route: 015
     Dates: start: 200809, end: 201309
  2. MIRENA [Suspect]
     Indication: CONTRACEPTION
     Dosage: UNK
     Route: 015
     Dates: start: 201309, end: 201311

REACTIONS (4)
  - Ectopic pregnancy with contraceptive device [Recovered/Resolved]
  - Ruptured ectopic pregnancy [Recovered/Resolved]
  - Drug ineffective [None]
  - Medication error [None]
